FAERS Safety Report 18302843 (Version 6)
Quarter: 2021Q4

REPORT INFORMATION
  Report Type: Other
  Country: US (occurrence: US)
  Receive Date: 20200924
  Receipt Date: 20211006
  Transmission Date: 20220303
  Serious: Yes (Hospitalization)
  Sender: FDA-Public Use
  Company Number: US-ROCHE-2676889

PATIENT
  Age: 46 Year
  Sex: Male

DRUGS (1)
  1. OCREVUS [Suspect]
     Active Substance: OCRELIZUMAB
     Indication: Relapsing multiple sclerosis
     Dosage: NO
     Route: 042
     Dates: start: 202004

REACTIONS (1)
  - Herpes zoster meningoencephalitis [Recovered/Resolved]

NARRATIVE: CASE EVENT DATE: 20200901
